FAERS Safety Report 7379267-6 (Version None)
Quarter: 2011Q1

REPORT INFORMATION
  Report Type: 
  Country: None (occurrence: None)
  Receive Date: 20110328
  Receipt Date: 20110321
  Transmission Date: 20110831
  Serious: Yes (Other)
  Sender: FDA-Public Use
  Company Number: FR-BRISTOL-MYERS SQUIBB COMPANY-15624976

PATIENT
  Age: 77 Year
  Sex: Female

DRUGS (7)
  1. SERETIDE [Concomitant]
  2. LEVOTHYROX [Concomitant]
  3. ISOPTIN SR [Concomitant]
  4. AERIUS [Concomitant]
  5. IRBESARTAN [Suspect]
     Dosage: DURATION OF THERAPY:LONG TIME
  6. VENTOLIN [Concomitant]
  7. DEROXAT [Suspect]
     Indication: DEPRESSION
     Dosage: DURATION OF THERAPY:LONG TIME
     Dates: end: 20101218

REACTIONS (3)
  - HYPONATRAEMIA [None]
  - BRONCHOSPASM [None]
  - DYSPNOEA [None]
